FAERS Safety Report 6890148-4 (Version None)
Quarter: 2010Q3

REPORT INFORMATION
  Report Type: 
  Country: None (occurrence: None)
  Receive Date: 20100730
  Receipt Date: 20080924
  Transmission Date: 20110219
  Serious: No
  Sender: FDA-Public Use
  Company Number: US-PFIZER INC-2008069397

PATIENT
  Sex: Female

DRUGS (4)
  1. LIPITOR [Suspect]
     Dates: start: 20080101, end: 20080810
  2. FISH OIL [Suspect]
  3. MULTI-VITAMINS [Suspect]
  4. ASCORBIC ACID/COPPER/RETINOL/TOCOPHEROL/ZINC [Suspect]

REACTIONS (1)
  - PAIN IN EXTREMITY [None]
